FAERS Safety Report 7441454-6 (Version None)
Quarter: 2011Q2

REPORT INFORMATION
  Report Type: 
  Country: None (occurrence: None)
  Receive Date: 20110428
  Receipt Date: 20110420
  Transmission Date: 20111010
  Serious: Yes (Death, Life-Threatening, Hospitalization, Disabling, Other)
  Sender: FDA-Public Use
  Company Number: ES-JNJFOC-20100702715

PATIENT
  Sex: Female
  Weight: 57 kg

DRUGS (12)
  1. EPOETINA ALFA [Suspect]
     Indication: ANAEMIA
     Route: 058
  2. DEXAMETHASONE [Suspect]
  3. DEXAMETHASONE [Suspect]
  4. VELCADE [Suspect]
     Indication: LEUKAEMIA PLASMACYTIC
     Route: 042
  5. HALOPERIDOL [Suspect]
     Indication: PRODUCT USED FOR UNKNOWN INDICATION
     Route: 042
  6. LENALIDOMIDE [Suspect]
     Indication: MULTIPLE MYELOMA
  7. DEXAMETHASONE [Suspect]
  8. LOPERAMIDE HYDROCHLORIDE [Suspect]
     Route: 048
     Dates: start: 20100625, end: 20100701
  9. DEXAMETHASONE [Suspect]
  10. LOPERAMIDE HYDROCHLORIDE [Suspect]
     Indication: DIARRHOEA
     Route: 048
     Dates: start: 20100625, end: 20100701
  11. DEXAMETHASONE [Suspect]
     Indication: LEUKAEMIA PLASMACYTIC
  12. DEXAMETHASONE [Suspect]
     Indication: MULTIPLE MYELOMA

REACTIONS (7)
  - LEUKAEMIA PLASMACYTIC [None]
  - NEUTROPENIA [None]
  - ACUTE PULMONARY OEDEMA [None]
  - HYPERTENSIVE CRISIS [None]
  - THROMBOCYTOPENIA [None]
  - ANAEMIA [None]
  - DIARRHOEA [None]
